FAERS Safety Report 6955513-5 (Version None)
Quarter: 2010Q3

REPORT INFORMATION
  Report Type: 
  Country: None (occurrence: None)
  Receive Date: 20100826
  Receipt Date: 20100826
  Transmission Date: 20110219
  Serious: Yes (Death)
  Sender: FDA-Public Use
  Company Number: None

PATIENT
  Sex: Female
  Weight: 0.618 kg

DRUGS (1)
  1. INFASURF PRESERVATIVE FREE [Suspect]
     Indication: RESPIRATORY DISTRESS
     Dosage: 0. 6ML ET X 3 DOSES
     Dates: start: 20100817

REACTIONS (1)
  - CARDIO-RESPIRATORY ARREST NEONATAL [None]
